FAERS Safety Report 8132009-9 (Version None)
Quarter: 2012Q1

REPORT INFORMATION
  Report Type: 
  Country: None (occurrence: None)
  Receive Date: 20120213
  Receipt Date: 20120131
  Transmission Date: 20120608
  Serious: Yes (Hospitalization)
  Sender: FDA-Public Use
  Company Number: JP-NOVOPROD-341925

PATIENT
  Age: 78 Year
  Sex: Male
  Weight: 75 kg

DRUGS (16)
  1. INSULIN GLARGINE [Concomitant]
     Indication: TYPE 1 DIABETES MELLITUS
     Dosage: 8 U, QD
     Route: 058
     Dates: start: 20070601
  2. PREDNISOLONE [Concomitant]
     Indication: DRUG RASH WITH EOSINOPHILIA AND SYSTEMIC SYMPTOMS
     Dosage: 15 MG, QD
     Dates: start: 20070101
  3. PROMAC                             /01312301/ [Concomitant]
     Indication: DRUG RASH WITH EOSINOPHILIA AND SYSTEMIC SYMPTOMS
     Dosage: 75 MG, QD
     Route: 048
     Dates: start: 20070101
  4. LEVOTHYROXINE SODIUM [Concomitant]
     Indication: HYPOTHYROIDISM
     Dosage: 25 MICROGRAM
     Route: 048
     Dates: start: 20070101
  5. LANSOPRAZOLE [Concomitant]
     Dosage: 15 MG, QD
     Route: 048
     Dates: start: 20070101
  6. ALENDRONATE SODIUM [Concomitant]
     Indication: ATRIAL FIBRILLATION
     Dosage: 35 MG, QD
     Route: 048
     Dates: start: 20070101
  7. NOVORAPID CHU FLEXPEN [Suspect]
     Indication: TYPE 1 DIABETES MELLITUS
     Dosage: 30 U, QD
     Route: 058
     Dates: start: 20070601, end: 20110130
  8. NOVOLIN N [Suspect]
     Indication: TYPE 1 DIABETES MELLITUS
     Dosage: 9 IU, QD
     Route: 058
     Dates: start: 20070601, end: 20110130
  9. ASPIRIN [Concomitant]
     Indication: ATRIAL FIBRILLATION
     Dosage: 100 MG, QD
     Route: 048
     Dates: start: 20080101
  10. SELBEX [Concomitant]
     Indication: ARTHRALGIA
     Dosage: 100 MG, QD
     Route: 048
     Dates: start: 20080101
  11. NEUROTROPIN                        /00398601/ [Concomitant]
     Dosage: 16 U, QD
     Route: 048
     Dates: start: 20080101
  12. LIMAPROST ALFADEX [Concomitant]
     Indication: LUMBAR SPINAL STENOSIS
     Dosage: 15 A?G, QD
     Route: 048
  13. CELECOXIB [Concomitant]
     Indication: ARTHRALGIA
     Dosage: 200 MG, QD
     Route: 048
     Dates: start: 20080101
  14. ALLEGRA [Concomitant]
     Indication: GASTRIC CANCER
     Dosage: 15 MG, QD
     Route: 048
  15. URSO                               /00465701/ [Concomitant]
     Indication: BILIARY CIRRHOSIS PRIMARY
     Dosage: 300 MG, QD
     Route: 048
     Dates: start: 20071201
  16. SUNRYTHM [Concomitant]
     Indication: ATRIAL FIBRILLATION
     Dosage: 25 MG, QD
     Route: 048
     Dates: start: 20080101

REACTIONS (2)
  - WRONG TECHNIQUE IN DRUG USAGE PROCESS [None]
  - SUBCUTANEOUS HAEMATOMA [None]
